FAERS Safety Report 6587764-6 (Version None)
Quarter: 2010Q1

REPORT INFORMATION
  Report Type: 
  Country: None (occurrence: None)
  Receive Date: 20100218
  Receipt Date: 20100205
  Transmission Date: 20100710
  Serious: Yes (Other)
  Sender: FDA-Public Use
  Company Number: PHHY2010ZA04290

PATIENT
  Sex: Female
  Weight: 52 kg

DRUGS (4)
  1. ACLASTA [Suspect]
     Dosage: 5MG/100 ML, ONCE/YEAR
     Route: 042
     Dates: start: 20090701
  2. CALTRATE PLUS [Concomitant]
     Indication: OSTEOPOROSIS
     Dosage: UNK
     Dates: start: 20050501
  3. NEXIUM [Concomitant]
     Dosage: 20 MG DAILY
     Dates: start: 20060701
  4. CRESTOR [Concomitant]
     Indication: HYPERLIPIDAEMIA
     Dosage: 5 MG DAILY
     Dates: start: 20100101

REACTIONS (3)
  - DYSPEPSIA [None]
  - GASTROOESOPHAGEAL REFLUX DISEASE [None]
  - NAIL DISORDER [None]
